FAERS Safety Report 8866206 (Version 2)
Quarter: 2012Q4

REPORT INFORMATION
  Report Type: 
  Country: BR (occurrence: BR)
  Receive Date: 20121025
  Receipt Date: 20121107
  Transmission Date: 20130627
  Serious: Yes (Disabling)
  Sender: FDA-Public Use
  Company Number: BR-ASTRAZENECA-2012SE70240

PATIENT
  Age: 82 Year
  Sex: Female
  Weight: 65 kg

DRUGS (7)
  1. CRESTOR [Suspect]
     Indication: BLOOD CHOLESTEROL INCREASED
     Route: 048
     Dates: end: 20111231
  2. CRESTOR [Suspect]
     Indication: BLOOD CHOLESTEROL INCREASED
     Route: 048
     Dates: start: 20120101, end: 20120903
  3. CRESTOR [Suspect]
     Indication: BLOOD CHOLESTEROL INCREASED
     Route: 048
  4. DIOVAN ANLO FIX [Concomitant]
     Indication: HYPERTENSION
     Dosage: 320/5 MG
     Route: 048
  5. FRONTAL XR [Concomitant]
     Indication: INSOMNIA
     Route: 048
  6. CALCIUM [Concomitant]
     Indication: OSTEOPENIA
     Route: 048
  7. VENLAXIN [Concomitant]
     Indication: DEPRESSION
     Route: 048

REACTIONS (5)
  - Ligament sprain [Recovered/Resolved]
  - Vitamin B12 deficiency [Recovering/Resolving]
  - Blood cholesterol increased [Unknown]
  - Drug dispensing error [Unknown]
  - Drug ineffective [Unknown]
